FAERS Safety Report 7520016-6 (Version None)
Quarter: 2011Q2

REPORT INFORMATION
  Report Type: 
  Country: None (occurrence: None)
  Receive Date: 20110602
  Receipt Date: 20110527
  Transmission Date: 20111010
  Serious: Yes (Death, Other)
  Sender: FDA-Public Use
  Company Number: PHHY2011US33875

PATIENT
  Sex: Female
  Weight: 61 kg

DRUGS (1)
  1. GLEEVEC [Suspect]
     Indication: CHRONIC MYELOID LEUKAEMIA
     Dosage: 400 MG, BID
     Dates: start: 20110329

REACTIONS (4)
  - PNEUMONIA [None]
  - ASTHENIA [None]
  - BLAST CRISIS IN MYELOGENOUS LEUKAEMIA [None]
  - PANCYTOPENIA [None]
